FAERS Safety Report 12317068 (Version 1)
Quarter: 2016Q2

REPORT INFORMATION
  Report Type: Spontaneous
  Country: US (occurrence: US)
  Receive Date: 20160429
  Receipt Date: 20160429
  Transmission Date: 20160815
  Serious: Yes (Other)
  Sender: FDA-Public Use
  Company Number: US-TARO PHARMACEUTICALS USA.,INC-2016SUN00222

PATIENT
  Age: 52 Year
  Sex: Female

DRUGS (2)
  1. AMIODARONE [Suspect]
     Active Substance: AMIODARONE
     Indication: PRODUCT USED FOR UNKNOWN INDICATION
     Dosage: UNK
     Route: 065
  2. CONTRAST DYE [Suspect]
     Active Substance: UNSPECIFIED INGREDIENT
     Indication: COMPUTERISED TOMOGRAM
     Dosage: UNK

REACTIONS (5)
  - Hyperthyroidism [Unknown]
  - Cardiac failure [Unknown]
  - Atrial fibrillation [Unknown]
  - Thyrotoxic crisis [Unknown]
  - Organising pneumonia [Unknown]
